FAERS Safety Report 16725471 (Version 6)
Quarter: 2019Q3

REPORT INFORMATION
  Report Type: Spontaneous
  Country: PT (occurrence: PT)
  Receive Date: 20190821
  Receipt Date: 20190925
  Transmission Date: 20191005
  Serious: Yes (Other)
  Sender: FDA-Public Use
  Company Number: PHHY2019PT188960

PATIENT
  Age: 51 Year
  Sex: Female

DRUGS (14)
  1. CHLORDIAZEPOXIDE. [Interacting]
     Active Substance: CHLORDIAZEPOXIDE
     Indication: WEIGHT CONTROL
     Dosage: 10 MG, BID
     Route: 048
     Dates: start: 201706, end: 201807
  2. ORLISTAT. [Interacting]
     Active Substance: ORLISTAT
     Indication: WEIGHT CONTROL
     Route: 065
  3. ETHINYLESTRADIOL, GESTODENE [Interacting]
     Active Substance: ETHINYL ESTRADIOL\GESTODENE
     Indication: ORAL CONTRACEPTION
     Route: 048
  4. PHENOLPHTHALEIN [Interacting]
     Active Substance: PHENOLPHTHALEIN
     Indication: WEIGHT CONTROL
     Route: 065
  5. CENTELLA ASIATICA [Interacting]
     Active Substance: CENTELLA ASIATICA
     Indication: WEIGHT CONTROL
     Route: 065
  6. TOPIRAMATE. [Suspect]
     Active Substance: TOPIRAMATE
     Indication: WEIGHT CONTROL
     Dosage: 35 MG, BID
     Route: 048
     Dates: start: 201706, end: 201807
  7. METFORMIN [Suspect]
     Active Substance: METFORMIN HYDROCHLORIDE
     Indication: WEIGHT CONTROL
     Dosage: 230 MG, BID
     Route: 048
     Dates: start: 201706, end: 201807
  8. CASCARA SAGRADA [Interacting]
     Active Substance: FRANGULA PURSHIANA BARK
     Indication: WEIGHT CONTROL
     Dosage: 60 MG, 2ID
     Route: 065
     Dates: start: 201706, end: 201807
  9. SENNOSIDES A+B [Interacting]
     Active Substance: SENNOSIDES A AND B
     Indication: WEIGHT CONTROL
     Route: 065
  10. LEVOTIROXINA SODICA [Concomitant]
     Active Substance: LEVOTHYROXINE SODIUM
     Indication: HYPOTHYROIDISM
     Dosage: 0.1 MG, UNK
     Route: 048
     Dates: start: 2014
  11. BUPROPION. [Suspect]
     Active Substance: BUPROPION
     Indication: WEIGHT CONTROL
     Dosage: 120 MG, BID
     Route: 048
     Dates: start: 201706, end: 201807
  12. ORANGE C [Suspect]
     Active Substance: ASCORBIC ACID
     Indication: WEIGHT CONTROL
     Route: 065
  13. FUROSEMIDE. [Interacting]
     Active Substance: FUROSEMIDE
     Indication: WEIGHT CONTROL
     Dosage: 30 MG, BID
     Route: 065
     Dates: start: 201706, end: 201807
  14. CHROMIUM PICOLINATE [Interacting]
     Active Substance: CHROMIUM PICOLINATE
     Indication: WEIGHT CONTROL
     Route: 065

REACTIONS (7)
  - Headache [Recovering/Resolving]
  - Neurological symptom [Unknown]
  - Off label use [Unknown]
  - Cerebral venous thrombosis [Unknown]
  - Intentional product misuse [Unknown]
  - Product use in unapproved indication [Unknown]
  - Drug interaction [Unknown]

NARRATIVE: CASE EVENT DATE: 20180619
